FAERS Safety Report 15879114 (Version 1)
Quarter: 2019Q1

REPORT INFORMATION
  Report Type: Spontaneous
  Country: US (occurrence: US)
  Receive Date: 20190128
  Receipt Date: 20190128
  Transmission Date: 20190417
  Serious: No
  Sender: FDA-Public Use
  Company Number: US-SHIRE-US201902552

PATIENT
  Sex: Male

DRUGS (2)
  1. VYVANSE [Suspect]
     Active Substance: LISDEXAMFETAMINE DIMESYLATE
     Indication: OFF LABEL USE
  2. VYVANSE [Suspect]
     Active Substance: LISDEXAMFETAMINE DIMESYLATE
     Indication: PRODUCT USED FOR UNKNOWN INDICATION
     Dosage: 20 MG AND 30 MILLIGRAM
     Route: 065

REACTIONS (5)
  - Palpitations [Unknown]
  - Hypertension [Unknown]
  - Tachycardia [Unknown]
  - Substance use [Unknown]
  - Off label use [Unknown]

NARRATIVE: CASE EVENT DATE: 201812
